FAERS Safety Report 7934036-0 (Version None)
Quarter: 2011Q4

REPORT INFORMATION
  Report Type: 
  Country: None (occurrence: None)
  Receive Date: 20111122
  Receipt Date: 20111116
  Transmission Date: 20120403
  Serious: Yes (Other)
  Sender: FDA-Public Use
  Company Number: US-AMGEN-USASP2011060517

PATIENT
  Age: 75 Year
  Sex: Female

DRUGS (1)
  1. ENBREL [Suspect]
     Indication: RHEUMATOID ARTHRITIS
     Dosage: 50 MG, QWK
     Dates: start: 20111014, end: 20111028

REACTIONS (7)
  - HEADACHE [None]
  - EAR PAIN [None]
  - GINGIVAL PAIN [None]
  - PALPITATIONS [None]
  - DIZZINESS [None]
  - BALANCE DISORDER [None]
  - ABDOMINAL PAIN UPPER [None]
